FAERS Safety Report 25860476 (Version 1)
Quarter: 2025Q3

REPORT INFORMATION
  Report Type: Spontaneous
  Country: US (occurrence: US)
  Receive Date: 20250929
  Receipt Date: 20250929
  Transmission Date: 20251021
  Serious: No
  Sender: PFIZER
  Company Number: US-PFIZER INC-PV202500048109

PATIENT
  Age: 67 Year
  Sex: Female

DRUGS (1)
  1. NURTEC ODT [Suspect]
     Active Substance: RIMEGEPANT SULFATE
     Dosage: 1 BY MOUTH ONCE A DAY. LIMIT 2 DAYS PER WEEK
     Route: 048

REACTIONS (2)
  - Respiration abnormal [Unknown]
  - Off label use [Unknown]
